FAERS Safety Report 9143885 (Version 4)
Quarter: 2014Q4

REPORT INFORMATION
  Report Type: Report from Study
  Country: CA (occurrence: CA)
  Receive Date: 20130306
  Receipt Date: 20141029
  Transmission Date: 20150529
  Serious: Yes (Other)
  Sender: FDA-Public Use
  Company Number: CA-ROCHE-1197789

PATIENT
  Age: 68 Year
  Sex: Female
  Weight: 57 kg

DRUGS (8)
  1. CRESTOR [Concomitant]
     Active Substance: ROSUVASTATIN CALCIUM
  2. ESTRADIOL. [Concomitant]
     Active Substance: ESTRADIOL
  3. PROMETRIUM [Concomitant]
     Active Substance: PROGESTERONE
  4. DIPHENHYDRAMINE HCL [Concomitant]
     Active Substance: DIPHENHYDRAMINE HYDROCHLORIDE
     Indication: PREMEDICATION
     Route: 048
     Dates: start: 20121005
  5. METHYLPREDNISOLONE. [Concomitant]
     Active Substance: METHYLPREDNISOLONE
     Route: 042
     Dates: start: 20121005
  6. ACETAMINOPHEN. [Concomitant]
     Active Substance: ACETAMINOPHEN
     Indication: PREMEDICATION
     Route: 048
     Dates: start: 20121005
  7. MAVIK [Concomitant]
     Active Substance: TRANDOLAPRIL
  8. RITUXAN [Suspect]
     Active Substance: RITUXIMAB
     Indication: RHEUMATOID ARTHRITIS
     Route: 042
     Dates: start: 20121005

REACTIONS (5)
  - Foot deformity [Not Recovered/Not Resolved]
  - Laryngitis [Unknown]
  - Labyrinthitis [Recovered/Resolved]
  - Infusion related reaction [Unknown]
  - Foot operation [Recovered/Resolved]

NARRATIVE: CASE EVENT DATE: 20130911
